FAERS Safety Report 4741576-4 (Version None)
Quarter: 2005Q3

REPORT INFORMATION
  Report Type: 
  Country: None (occurrence: None)
  Receive Date: 20050810
  Receipt Date: 20050801
  Transmission Date: 20060218
  Serious: Yes (Life-Threatening, Hospitalization, Other)
  Sender: FDA-Public Use
  Company Number: US-ABBOTT-05P-163-0307176-00

PATIENT
  Sex: Female
  Weight: 61.29 kg

DRUGS (3)
  1. HUMIRA [Suspect]
     Indication: RHEUMATOID ARTHRITIS
     Route: 058
     Dates: start: 20030101, end: 20040101
  2. PENICILLIN [Suspect]
     Indication: BETA HAEMOLYTIC STREPTOCOCCAL INFECTION
     Route: 042
     Dates: start: 20050715, end: 20050715
  3. HYDROXYCHLOROQUINE PHOSPHATE [Concomitant]
     Indication: RHEUMATOID ARTHRITIS
     Route: 048
     Dates: start: 20010101, end: 20040101

REACTIONS (2)
  - ANAPHYLACTIC REACTION [None]
  - BETA HAEMOLYTIC STREPTOCOCCAL INFECTION [None]
